FAERS Safety Report 23626639 (Version 5)
Quarter: 2024Q2

REPORT INFORMATION
  Report Type: Spontaneous
  Country: CA (occurrence: CA)
  Receive Date: 20240313
  Receipt Date: 20240531
  Transmission Date: 20240716
  Serious: Yes (Hospitalization, Other)
  Sender: FDA-Public Use
  Company Number: CA-INCYTE CORPORATION-2024IN001995

PATIENT

DRUGS (2)
  1. PEMAZYRE [Suspect]
     Active Substance: PEMIGATINIB
     Indication: Acinar cell carcinoma of pancreas
     Dosage: 13.5 MILLIGRAM, 14 DAYS ON AND 7 DAYS OFF
     Route: 048
     Dates: start: 20240221, end: 202405
  2. PEMAZYRE [Suspect]
     Active Substance: PEMIGATINIB
     Dosage: 9 MILLIGRAM, 14 DAYS ON AND 7 DAYS OFF
     Route: 048
     Dates: start: 20240221

REACTIONS (7)
  - Fall [Unknown]
  - Oesophageal varices haemorrhage [Unknown]
  - Blood phosphorus decreased [Unknown]
  - Haemoglobin decreased [Recovered/Resolved]
  - Blood phosphorus increased [Unknown]
  - Product distribution issue [Unknown]
  - Off label use [Unknown]

NARRATIVE: CASE EVENT DATE: 20240221
